FAERS Safety Report 10207820 (Version 1)
Quarter: 2014Q2

REPORT INFORMATION
  Report Type: Spontaneous
  Country: FR (occurrence: FR)
  Receive Date: 20140530
  Receipt Date: 20140530
  Transmission Date: 20141212
  Serious: Yes (Disabling)
  Sender: FDA-Public Use
  Company Number: FR-TEVA-483601ISR

PATIENT
  Age: 54 Year
  Sex: Female

DRUGS (2)
  1. QVAR AUTOHALER 100 MCG:DOSE [Suspect]
     Indication: ASTHMA
     Dosage: 4 DOSAGE FORMS DAILY;
     Route: 055
     Dates: start: 2001
  2. SOLUMEDROL [Suspect]
     Indication: CELLULITIS
     Dosage: 80 MILLIGRAM DAILY;
     Dates: start: 20070927, end: 20070928

REACTIONS (3)
  - Osteonecrosis [Not Recovered/Not Resolved]
  - Arthralgia [Unknown]
  - Cellulitis [None]
